FAERS Safety Report 25925160 (Version 1)
Quarter: 2025Q4

REPORT INFORMATION
  Report Type: Spontaneous
  Country: EU (occurrence: EU)
  Receive Date: 20251015
  Receipt Date: 20251015
  Transmission Date: 20260117
  Serious: Yes (Death)
  Sender: FRESENIUS KABI
  Company Number: None

PATIENT
  Age: 50 Year
  Sex: Male
  Weight: 61 kg

DRUGS (4)
  1. OXALIPLATIN [Suspect]
     Active Substance: OXALIPLATIN
     Indication: Oesophageal cancer metastatic
     Route: 042
     Dates: start: 20250905, end: 20250905
  2. OPDIVO [Suspect]
     Active Substance: NIVOLUMAB
     Indication: Oesophageal cancer metastatic
     Route: 042
     Dates: start: 20250905, end: 20250905
  3. FLUOROURACIL [Suspect]
     Active Substance: FLUOROURACIL
     Indication: Oesophageal cancer metastatic
     Route: 042
     Dates: start: 20250905, end: 20250905
  4. FLUOROURACIL [Suspect]
     Active Substance: FLUOROURACIL
     Route: 042
     Dates: start: 20250905, end: 20250907

REACTIONS (1)
  - Acute coronary syndrome [Fatal]

NARRATIVE: CASE EVENT DATE: 20250908
